FAERS Safety Report 6083405-5 (Version None)
Quarter: 2009Q1

REPORT INFORMATION
  Report Type: 
  Country: None (occurrence: None)
  Receive Date: 20090217
  Receipt Date: 20090210
  Transmission Date: 20090719
  Serious: Yes (Disabling)
  Sender: FDA-Public Use
  Company Number: IPS_01427_2009

PATIENT
  Sex: Male
  Weight: 58.9676 kg

DRUGS (5)
  1. APOKYN [Suspect]
     Indication: PARKINSON'S DISEASE
     Dosage: 0.1 ML BID SUBCUTANEOUS
     Route: 058
     Dates: start: 20090102, end: 20090103
  2. APOKYN [Suspect]
     Indication: PARKINSON'S DISEASE
     Dosage: DF SUBCUTANEOUS
     Route: 058
     Dates: start: 20090101
  3. COMTAN [Concomitant]
  4. SINEMET [Concomitant]
  5. MIRAPEX [Concomitant]

REACTIONS (5)
  - ABASIA [None]
  - DRUG INEFFECTIVE [None]
  - HYPOPHAGIA [None]
  - MUSCLE RIGIDITY [None]
  - TREMOR [None]
